FAERS Safety Report 7608910-9 (Version None)
Quarter: 2011Q3

REPORT INFORMATION
  Report Type: 
  Country: None (occurrence: None)
  Receive Date: 20110714
  Receipt Date: 20110705
  Transmission Date: 20111222
  Serious: Yes (Hospitalization)
  Sender: FDA-Public Use
  Company Number: US-PFIZER INC-2011151395

PATIENT
  Sex: Male
  Weight: 77 kg

DRUGS (13)
  1. ABT-888 [Suspect]
     Indication: NEOPLASM
     Dosage: 160 MG, 2X/DAY - CYCLE 1 DOSED ON DAY 15-19. CYCLE 2, D1-5 AND 15-19
     Route: 048
     Dates: start: 20110609, end: 20110610
  2. FINASTERIDE [Concomitant]
     Dosage: 5 MG, 1X/DAY
  3. OXYCODONE HYDROCHLORIDE [Concomitant]
     Indication: PAIN
     Dosage: 5 MG, AS NEEDED
  4. CLONAZEPAM [Concomitant]
     Indication: ANXIETY
     Dosage: 5 AS NEEDED
  5. PROCHLORPERAZINE MALEATE [Concomitant]
     Indication: NAUSEA
     Dosage: 10 MG, AS NEEDED
  6. FLUOROURACIL [Suspect]
     Indication: NEOPLASM
     Dosage: 24000 MG/M2, 1 IN 2 WK, (3 D INFUSION) D 1, D 15 OF 28 D CYCLE
     Route: 042
     Dates: start: 20110526, end: 20110610
  7. IRINOTECAN HCL [Suspect]
     Indication: NEOPLASM
     Dosage: 150 MG/M2, 1 IN 2 WK, D1, D15
     Route: 042
     Dates: start: 20110526, end: 20110610
  8. LEUCOVORIN CALCIUM [Suspect]
     Indication: NEOPLASM
     Dosage: 400 MG/M2, D 1, D 15 OF EACH 28 D CYCLE
     Route: 042
     Dates: start: 20110526, end: 20110610
  9. ZOLEDRONIC ACID [Concomitant]
     Dosage: 4 MG, 1 IN 4 WK
  10. ONDANSETRON HYDROCHLORIDE [Concomitant]
     Indication: NAUSEA
     Dosage: 8 MG, AS NEEDED
  11. CIRRUS [Concomitant]
     Indication: HYPERSENSITIVITY
     Dosage: UNK, 1X/DAY
  12. MORNIFLUMATE [Concomitant]
     Dosage: 0.4 MG, 1X/DAY
  13. AMLODIPINE BESILATE [Concomitant]
     Dosage: UNK, 1X/DAY

REACTIONS (1)
  - NON-CARDIAC CHEST PAIN [None]
